FAERS Safety Report 20227167 (Version 1)
Quarter: 2021Q4

REPORT INFORMATION
  Report Type: Spontaneous
  Country: CA (occurrence: CA)
  Receive Date: 20211224
  Receipt Date: 20211224
  Transmission Date: 20220303
  Serious: Yes (Other)
  Sender: FDA-Public Use
  Company Number: CA-SA-SAC20211222001349

PATIENT
  Age: 74 Year
  Sex: Female

DRUGS (11)
  1. LEFLUNOMIDE [Suspect]
     Active Substance: LEFLUNOMIDE
  2. METHOTREXATE [Suspect]
     Active Substance: METHOTREXATE
  3. FOLIC ACID [Suspect]
     Active Substance: FOLIC ACID
  4. ERGOCALCIFEROL [Suspect]
     Active Substance: ERGOCALCIFEROL
  5. RABEPRAZOLE [Suspect]
     Active Substance: RABEPRAZOLE
  6. RISEDRONATE SODIUM [Suspect]
     Active Substance: RISEDRONATE SODIUM
  7. CELEBREX [Concomitant]
     Active Substance: CELECOXIB
  8. CHLORTHALIDONE [Concomitant]
     Active Substance: CHLORTHALIDONE
  9. ENBREL [Concomitant]
     Active Substance: ETANERCEPT
  10. SYNTHROID [Concomitant]
     Active Substance: LEVOTHYROXINE SODIUM
  11. TYLENOL [Concomitant]
     Active Substance: ACETAMINOPHEN

REACTIONS (13)
  - Arthralgia [Unknown]
  - Hypertension [Unknown]
  - Interstitial lung disease [Unknown]
  - Joint swelling [Unknown]
  - Musculoskeletal stiffness [Unknown]
  - Osteoarthritis [Unknown]
  - Osteoporosis [Unknown]
  - Pain [Unknown]
  - Foot fracture [Unknown]
  - Hand deformity [Unknown]
  - Joint injury [Unknown]
  - Lower limb fracture [Unknown]
  - Drug ineffective [Unknown]
